FAERS Safety Report 8578700-1 (Version None)
Quarter: 2012Q3

REPORT INFORMATION
  Report Type: 
  Country: None (occurrence: None)
  Receive Date: 20120808
  Receipt Date: 20120807
  Transmission Date: 20120928
  Serious: Yes (Other)
  Sender: FDA-Public Use
  Company Number: PHHY2012BR047784

PATIENT
  Sex: Male

DRUGS (7)
  1. ENALAPRIL MALEATE [Concomitant]
     Indication: CARDIAC DISORDER
     Dosage: 5 MG, (2 TIMES DAILY)
  2. SIMVASTATIN [Concomitant]
     Indication: BLOOD CHOLESTEROL INCREASED
     Dosage: 20 MG, (1 TIME IN NOCTE)
  3. LASIX [Concomitant]
     Dosage: 40 MG, (2 TIMES DAILY)
  4. FORMOTEROL FUMARATE [Suspect]
     Indication: CHRONIC OBSTRUCTIVE PULMONARY DISEASE
     Dosage: 1 DF, (2 TIMES DAILY)
  5. ALDACTONE [Concomitant]
     Indication: CARDIAC DISORDER
     Dosage: 105 MG, (1 TIME DAILY)
  6. WARFARIN SODIUM [Concomitant]
     Indication: ATRIAL FIBRILLATION
     Dosage: DOSE OF HALF TABLET, EVERY OTHER DAY
  7. OMEPRAZOLE [Concomitant]
     Indication: ABDOMINAL DISCOMFORT
     Dosage: 20 MG, (1 TABLET DAILY)

REACTIONS (5)
  - DEPRESSION [None]
  - POOR PERIPHERAL CIRCULATION [None]
  - INFECTION [None]
  - GANGRENE [None]
  - CARDIAC FAILURE CONGESTIVE [None]
